FAERS Safety Report 8634038 (Version 3)
Quarter: 2014Q1

REPORT INFORMATION
  Report Type: Spontaneous
  Country: US (occurrence: US)
  Receive Date: 20120626
  Receipt Date: 20140130
  Transmission Date: 20141002
  Serious: Yes (Disabling)
  Sender: FDA-Public Use
  Company Number: US-ASTRAZENECA-2012SE35896

PATIENT
  Age: 58 Year
  Sex: Female

DRUGS (7)
  1. NEXIUM [Suspect]
     Indication: GASTROOESOPHAGEAL REFLUX DISEASE
     Route: 048
     Dates: start: 2001, end: 2011
  2. NEXIUM [Suspect]
     Indication: GASTROOESOPHAGEAL REFLUX DISEASE
     Route: 048
     Dates: start: 20101202
  3. PLAVIX [Concomitant]
     Dates: start: 20101103
  4. LIPITOR [Concomitant]
     Dates: start: 20101103
  5. FOLIC ACID [Concomitant]
     Dates: start: 20101103
  6. LEXAPRO [Concomitant]
     Dates: start: 20101202
  7. GABAPENTIN [Concomitant]
     Dates: start: 20110309

REACTIONS (3)
  - Limb deformity [Unknown]
  - Osteoporosis [Unknown]
  - Spinal fracture [Unknown]
